FAERS Safety Report 8319663 (Version 3)
Quarter: 2014Q4

REPORT INFORMATION
  Report Type: Spontaneous
  Country: GB (occurrence: GB)
  Receive Date: 20120103
  Receipt Date: 20141010
  Transmission Date: 20150529
  Serious: Yes (Disabling)
  Sender: FDA-Public Use
  Company Number: GB-BAYER-2012-000364

PATIENT
  Age: 39 Year
  Sex: Male
  Weight: 80 kg

DRUGS (4)
  1. CIPROFLOXACIN MONOHYDROCHLORIDE [Suspect]
     Active Substance: CIPROFLOXACIN
     Indication: PROSTATITIS
     Dosage: 500 MG, BID
     Dates: start: 20080115, end: 20080129
  2. CIPROFLOXACIN MONOHYDROCHLORIDE [Suspect]
     Active Substance: CIPROFLOXACIN
     Indication: URINARY TRACT INFECTION
     Dosage: 500 MG, BID
     Dates: start: 20071116, end: 20071214
  3. CIPROFLOXACIN MONOHYDROCHLORIDE [Suspect]
     Active Substance: CIPROFLOXACIN
     Indication: URINARY TRACT INFECTION
     Dosage: 500 MG, BID
     Dates: start: 20111002, end: 20111030
  4. UNKNOWN DRUG [Concomitant]
     Active Substance: UNSPECIFIED INGREDIENT
     Dosage: UNK
     Dates: start: 2008

REACTIONS (31)
  - Muscle atrophy [None]
  - Arthralgia [None]
  - Tinnitus [Not Recovered/Not Resolved]
  - Abdominal pain [None]
  - Dyspepsia [None]
  - Joint crepitation [Not Recovered/Not Resolved]
  - Malaise [None]
  - Sensory disturbance [None]
  - Photosensitivity reaction [None]
  - Rash [None]
  - Asthenia [None]
  - Abdominal distension [Not Recovered/Not Resolved]
  - Abdominal pain [Not Recovered/Not Resolved]
  - Tendon discomfort [Not Recovered/Not Resolved]
  - Tendonitis [Not Recovered/Not Resolved]
  - Gastrointestinal pain [None]
  - Pain in extremity [None]
  - Joint stiffness [None]
  - Limb discomfort [Not Recovered/Not Resolved]
  - Irritable bowel syndrome [None]
  - Musculoskeletal stiffness [None]
  - Arthropathy [Not Recovered/Not Resolved]
  - Fatigue [Not Recovered/Not Resolved]
  - Hypoaesthesia [None]
  - Dry skin [None]
  - Nerve compression [None]
  - Diarrhoea [Not Recovered/Not Resolved]
  - Sciatica [None]
  - Tendon pain [None]
  - Pruritus [None]
  - Paraesthesia [None]

NARRATIVE: CASE EVENT DATE: 2007
